FAERS Safety Report 26088419 (Version 2)
Quarter: 2025Q4

REPORT INFORMATION
  Report Type: Report from Study
  Country: CO (occurrence: CO)
  Receive Date: 20251125
  Receipt Date: 20251211
  Transmission Date: 20260118
  Serious: Yes (Death, Hospitalization)
  Sender: ALEXION PHARMACEUTICALS
  Company Number: CO-AstraZeneca-CH-00994319A

PATIENT
  Age: 50 Year
  Sex: Female

DRUGS (1)
  1. DURVALUMAB [Suspect]
     Active Substance: DURVALUMAB
     Indication: Biliary neoplasm
     Dosage: 1500 MILLIGRAM, Q3W
     Dates: start: 20251017

REACTIONS (4)
  - Myocardial infarction [Fatal]
  - Asthenia [Unknown]
  - Dyspnoea [Unknown]
  - Vomiting [Recovering/Resolving]

NARRATIVE: CASE EVENT DATE: 20251113
